FAERS Safety Report 7610962-7 (Version None)
Quarter: 2011Q3

REPORT INFORMATION
  Report Type: 
  Country: None (occurrence: None)
  Receive Date: 20110715
  Receipt Date: 20110711
  Transmission Date: 20111222
  Serious: Yes (Life-Threatening, Hospitalization, Other)
  Sender: FDA-Public Use
  Company Number: PHHY2011SE61862

PATIENT
  Sex: Male

DRUGS (11)
  1. SIMVASTATIN [Interacting]
     Indication: HYPERTRIGLYCERIDAEMIA
  2. PREDNISOLONE [Concomitant]
     Dosage: UNK
  3. SANDIMMUNE [Interacting]
     Indication: AORTIC STENOSIS
  4. METOPROLOL TARTRATE [Concomitant]
     Dosage: UNK
  5. ENALAPRIL MALEATE [Concomitant]
     Dosage: UNK
  6. SIMVASTATIN [Interacting]
     Indication: HYPERLIPIDAEMIA
     Dosage: 40 MG, UNK
     Dates: start: 20090101, end: 20110312
  7. WARFARIN SODIUM [Interacting]
     Indication: AORTIC STENOSIS
  8. ALLOPURINOL [Suspect]
     Dosage: 100MG/DAY
  9. FUROSEMIDE [Concomitant]
     Dosage: 40 MG
  10. WARFARIN SODIUM [Interacting]
     Indication: RENAL TRANSPLANT
     Dosage: 2.5 MG
  11. SANDIMMUNE [Interacting]
     Indication: RENAL TRANSPLANT
     Dosage: 50 MG, UNK
     Dates: start: 19920101

REACTIONS (7)
  - RHABDOMYOLYSIS [None]
  - MYOPATHY [None]
  - CARDIAC FAILURE [None]
  - MYOGLOBIN BLOOD INCREASED [None]
  - BLOOD CREATINE PHOSPHOKINASE [None]
  - DRUG INTERACTION [None]
  - MYALGIA [None]
